FAERS Safety Report 4465255-6 (Version None)
Quarter: 2004Q3

REPORT INFORMATION
  Report Type: 
  Country: None (occurrence: None)
  Receive Date: 20040929
  Receipt Date: 20040916
  Transmission Date: 20050211
  Serious: Yes (Hospitalization, Other)
  Sender: FDA-Public Use
  Company Number: 2004061793

PATIENT
  Sex: Female

DRUGS (6)
  1. ZOLOFT [Suspect]
     Indication: NERVOUSNESS
  2. ROFECOXIB [Suspect]
     Indication: ILL-DEFINED DISORDER
     Dosage: U/HR
  3. HYDROCODONE (HYDROCODONE) [Suspect]
     Indication: ILL-DEFINED DISORDER
  4. OXYCODONE HCL [Suspect]
     Indication: ILL-DEFINED DISORDER
  5. ALL OTHER THERAPEUTIC PRODUCTS [Concomitant]
  6. TIZANIDINE HYDROCHLORIDE [Concomitant]

REACTIONS (12)
  - ANXIETY [None]
  - BLOOD PRESSURE DECREASED [None]
  - DELIRIUM TREMENS [None]
  - DRUG INEFFECTIVE [None]
  - FIBROMYALGIA [None]
  - HIP SURGERY [None]
  - KNEE OPERATION [None]
  - NERVOUSNESS [None]
  - PAIN [None]
  - PARALYSIS [None]
  - POST PROCEDURAL COMPLICATION [None]
  - RESTLESS LEGS SYNDROME [None]
